FAERS Safety Report 24074042 (Version 2)
Quarter: 2025Q2

REPORT INFORMATION
  Report Type: Spontaneous
  Country: US (occurrence: US)
  Receive Date: 20240710
  Receipt Date: 20250605
  Transmission Date: 20250717
  Serious: No
  Sender: PIERRE FABRE MEDICAMENT
  Company Number: US-PFM-2024-02574

PATIENT
  Sex: Female
  Weight: 7.85 kg

DRUGS (2)
  1. HEMANGEOL [Suspect]
     Active Substance: PROPRANOLOL HYDROCHLORIDE
     Indication: Haemangioma
     Dosage: 1.8 ML, BID (2/DAY)
     Dates: start: 20240423
  2. HEMANGEOL [Suspect]
     Active Substance: PROPRANOLOL HYDROCHLORIDE
     Dosage: 3.1 ML, BID (2/DAY)

REACTIONS (3)
  - Frequent bowel movements [Unknown]
  - Illness [Recovered/Resolved]
  - Cough [Not Recovered/Not Resolved]
